FAERS Safety Report 15134221 (Version 7)
Quarter: 2018Q4

REPORT INFORMATION
  Report Type: Spontaneous
  Country: FR (occurrence: FR)
  Receive Date: 20180712
  Receipt Date: 20181123
  Transmission Date: 20190204
  Serious: Yes (Life-Threatening, Hospitalization, Other)
  Sender: FDA-Public Use
  Company Number: FR-AUROBINDO-AUR-APL-2018-033993

PATIENT
  Age: 88 Year
  Sex: Female
  Weight: 36 kg

DRUGS (10)
  1. ENALAPRIL MALEATE. [Concomitant]
     Active Substance: ENALAPRIL MALEATE
     Indication: BLOOD PRESSURE MEASUREMENT
     Dosage: 2.5 OR 5 MG
     Route: 065
     Dates: start: 201709, end: 20171127
  2. IRBESARTAN HYDROCHLOROTHIAZIDE [Concomitant]
     Active Substance: HYDROCHLOROTHIAZIDE\IRBESARTAN
     Indication: BLOOD PRESSURE MEASUREMENT
     Dosage: 150/25 MG PER DAY
     Route: 065
     Dates: start: 20171127
  3. LACOSAMIDE. [Interacting]
     Active Substance: LACOSAMIDE
     Indication: NEURODEGENERATIVE DISORDER
     Dosage: 50 MILLIGRAM, TWO TIMES A DAY (LOW DOSERECOMMENDED INITIATION DOSAGE)
     Route: 065
     Dates: start: 20171128, end: 20171204
  4. PANTOPRAZOLE [Concomitant]
     Active Substance: PANTOPRAZOLE
     Indication: PRODUCT USED FOR UNKNOWN INDICATION
     Dosage: 20 MILLIGRAM, ONCE A DAY
     Route: 065
  5. BISOPROLOL [Interacting]
     Active Substance: BISOPROLOL
     Indication: ANGINA PECTORIS
  6. CYANOCOBALAMIN. [Concomitant]
     Active Substance: CYANOCOBALAMIN
     Indication: PRODUCT USED FOR UNKNOWN INDICATION
     Dosage: 250 MICROGRAM (ON MONDAY AND TUESDAY)
     Route: 065
  7. LACOSAMIDE. [Interacting]
     Active Substance: LACOSAMIDE
     Indication: EPILEPSY
     Dosage: LOW DOSE, UNKNOWN DOSE
     Route: 065
  8. BISOPROLOL [Suspect]
     Active Substance: BISOPROLOL
     Indication: HYPERTENSION
     Dosage: 1.25 MILLIGRAM, ONCE A DAY
     Route: 065
     Dates: end: 20171204
  9. MACROGOL [Concomitant]
     Active Substance: POLYETHYLENE GLYCOLS
     Indication: PRODUCT USED FOR UNKNOWN INDICATION
     Dosage: 10 GRAM (ONCE OR TWICE A DAY)
     Route: 065
  10. ACETAMINOPHEN. [Concomitant]
     Active Substance: ACETAMINOPHEN
     Indication: PRODUCT USED FOR UNKNOWN INDICATION
     Dosage: 1 GRAM, TWO TIMES A DAY (BID IF NEEDED)
     Route: 065

REACTIONS (5)
  - Hypotension [Unknown]
  - Atrioventricular block complete [Recovering/Resolving]
  - Drug interaction [Recovering/Resolving]
  - Sinus bradycardia [Unknown]
  - Syncope [Unknown]

NARRATIVE: CASE EVENT DATE: 2017
